FAERS Safety Report 14627070 (Version 4)
Quarter: 2021Q1

REPORT INFORMATION
  Report Type: Spontaneous
  Country: US (occurrence: US)
  Receive Date: 20180312
  Receipt Date: 20210203
  Transmission Date: 20210419
  Serious: Yes (Death, Hospitalization, Other)
  Sender: FDA-Public Use
  Company Number: US-ASTRAZENECA-2018SE29325

PATIENT
  Age: 21229 Day
  Sex: Male

DRUGS (111)
  1. NEXIUM [Suspect]
     Active Substance: ESOMEPRAZOLE MAGNESIUM
     Indication: DYSPEPSIA
     Dosage: 20.0MG UNKNOWN
     Route: 048
     Dates: start: 2009
  2. NEXIUM [Suspect]
     Active Substance: ESOMEPRAZOLE MAGNESIUM
     Indication: DYSPEPSIA
     Dosage: 40.0MG UNKNOWN
     Route: 048
     Dates: start: 2009, end: 2018
  3. NEXIUM [Suspect]
     Active Substance: ESOMEPRAZOLE MAGNESIUM
     Indication: DYSPEPSIA
     Dosage: GENERIC 40.0MG UNKNOWN
     Route: 048
     Dates: start: 20190802
  4. PROPRANOLOL [Concomitant]
     Active Substance: PROPRANOLOL HYDROCHLORIDE
     Indication: HYPERTENSION
     Route: 065
     Dates: start: 2014, end: 2016
  5. PROZAC [Concomitant]
     Active Substance: FLUOXETINE HYDROCHLORIDE
     Route: 048
  6. NEOSPORIN [Concomitant]
     Active Substance: BACITRACIN ZINC\NEOMYCIN SULFATE\POLYMYXIN B SULFATE
  7. HYTRIN [Concomitant]
     Active Substance: TERAZOSIN HYDROCHLORIDE
  8. CYCLOBENZAPRINE. [Concomitant]
     Active Substance: CYCLOBENZAPRINE
  9. METRONIDAZOLE. [Concomitant]
     Active Substance: METRONIDAZOLE
  10. GOLYTELY [Concomitant]
     Active Substance: POLYETHYLENE GLYCOL 3350\POTASSIUM CHLORIDE\SODIUM BICARBONATE\SODIUM CHLORIDE\SODIUM SULFATE
  11. PHENAZOPYRIDINE. [Concomitant]
     Active Substance: PHENAZOPYRIDINE
  12. GUAIFENSIN [Concomitant]
     Active Substance: GUAIFENESIN
     Dates: start: 20160725
  13. DILACOR [Concomitant]
  14. BELSOMRA [Concomitant]
     Active Substance: SUVOREXANT
  15. CLAVULANATE [Concomitant]
     Active Substance: CLAVULANIC ACID
  16. VALIUM [Concomitant]
     Active Substance: DIAZEPAM
     Dates: start: 20200814
  17. COREG [Concomitant]
     Active Substance: CARVEDILOL
     Dates: start: 20200814
  18. DEXTROMETHORPHAN [Concomitant]
     Active Substance: DEXTROMETHORPHAN
     Dates: start: 20200814
  19. PREDNISONE. [Concomitant]
     Active Substance: PREDNISONE
     Dates: start: 20191216
  20. MECLIZINE [Concomitant]
     Active Substance: MECLIZINE HYDROCHLORIDE
     Dates: start: 20191216
  21. DEXTROMETHORPHAN?GUAIFENESIN [Concomitant]
     Active Substance: DEXTROMETHORPHAN\GUAIFENESIN
     Dates: start: 20191216
  22. NEXIUM [Suspect]
     Active Substance: ESOMEPRAZOLE MAGNESIUM
     Indication: DYSPEPSIA
     Route: 048
     Dates: start: 2014, end: 2017
  23. CLONAZEPAM. [Concomitant]
     Active Substance: CLONAZEPAM
     Indication: SEIZURE
     Route: 048
     Dates: start: 2014, end: 2017
  24. PROVENTIL [Concomitant]
     Active Substance: ALBUTEROL
     Indication: COUGH
     Route: 065
     Dates: start: 2014
  25. MULTIVITAMINS [Concomitant]
     Active Substance: VITAMINS
     Indication: ROUTINE HEALTH MAINTENANCE
     Route: 048
     Dates: start: 20200820
  26. PYRIDIUM [Concomitant]
     Active Substance: PHENAZOPYRIDINE
     Indication: PAIN
     Dates: start: 20200814
  27. TUBERCULIN NOS [Concomitant]
     Active Substance: TUBERCULIN PURIFIED PROTEIN DERIVATIVE
  28. QUETIAPINE. [Concomitant]
     Active Substance: QUETIAPINE
     Dates: start: 20180618
  29. SOLU?MEDROL [Concomitant]
     Active Substance: METHYLPREDNISOLONE SODIUM SUCCINATE
  30. CETRIZINE [Concomitant]
     Active Substance: CETIRIZINE HYDROCHLORIDE
     Dates: start: 20200814
  31. ALBUTEROL. [Concomitant]
     Active Substance: ALBUTEROL
     Indication: COUGH
     Dosage: INHALE 2 PUFFS EVERY 6 HOURS AS NEEDED
     Route: 065
     Dates: start: 2015
  32. KENALOG [Concomitant]
     Active Substance: TRIAMCINOLONE ACETONIDE
  33. CIPROFLOXACIN. [Concomitant]
     Active Substance: CIPROFLOXACIN
  34. GABAPENTIN. [Concomitant]
     Active Substance: GABAPENTIN
     Dates: start: 20200814
  35. ONDANSETRON HCL [Concomitant]
     Active Substance: ONDANSETRON HYDROCHLORIDE
     Dates: start: 20191216
  36. FOLEY [Concomitant]
     Dates: start: 20191216
  37. MAGNESIUM OXIDE. [Concomitant]
     Active Substance: MAGNESIUM OXIDE
     Dates: start: 20191216
  38. SOLAQUIN [Concomitant]
     Dates: start: 20191216
  39. LOSARTAN POTASSIUM. [Concomitant]
     Active Substance: LOSARTAN POTASSIUM
  40. NEXIUM [Suspect]
     Active Substance: ESOMEPRAZOLE MAGNESIUM
     Indication: DYSPEPSIA
     Dosage: GENERIC 40.0MG UNKNOWN
     Route: 065
     Dates: start: 2018
  41. OLOPATADINE. [Concomitant]
     Active Substance: OLOPATADINE
     Dates: start: 20180119
  42. JANUVIA [Concomitant]
     Active Substance: SITAGLIPTIN PHOSPHATE
  43. LIDOCAINE VISCOUS [Concomitant]
     Active Substance: LIDOCAINE HYDROCHLORIDE
  44. FLONASE [Concomitant]
     Active Substance: FLUTICASONE PROPIONATE
     Dates: start: 20200814
  45. ACETAZOLAMIDE. [Concomitant]
     Active Substance: ACETAZOLAMIDE
     Dates: start: 20200814
  46. COLESTIPOL [Concomitant]
     Active Substance: COLESTIPOL
     Dates: start: 20200814
  47. LIDOCAINE. [Concomitant]
     Active Substance: LIDOCAINE
     Indication: CARDIAC DISORDER
     Route: 065
     Dates: start: 2014
  48. QVAR [Concomitant]
     Active Substance: BECLOMETHASONE DIPROPIONATE
     Dosage: 80MCG/ACT INHALE 1 PUFF 2 TIMES DAILY
     Route: 065
     Dates: start: 2014
  49. LOMOTIL [Concomitant]
     Active Substance: ATROPINE SULFATE\DIPHENOXYLATE HYDROCHLORIDE
     Dosage: 2.5?0.025 MG
     Route: 048
  50. OXYCODONE [Concomitant]
     Active Substance: OXYCODONE
     Dates: start: 20180618
  51. FLUOXETINE [Concomitant]
     Active Substance: FLUOXETINE HYDROCHLORIDE
     Dates: start: 20200814
  52. HYDROXYZINE [Concomitant]
     Active Substance: HYDROXYZINE HYDROCHLORIDE
     Dates: start: 20200814
  53. MUPIROCIN. [Concomitant]
     Active Substance: MUPIROCIN
     Dates: start: 20200814
  54. AMLODIPINE BESYLATE. [Concomitant]
     Active Substance: AMLODIPINE BESYLATE
     Dates: start: 20191216
  55. FOLEX [Concomitant]
     Dates: start: 20191216
  56. NEXIUM [Suspect]
     Active Substance: ESOMEPRAZOLE MAGNESIUM
     Indication: DYSPEPSIA
     Dosage: 40.0MG UNKNOWN
     Route: 048
     Dates: start: 20110424
  57. NEXIUM [Suspect]
     Active Substance: ESOMEPRAZOLE MAGNESIUM
     Indication: DYSPEPSIA
     Dosage: GENERIC 40.0MG UNKNOWN
     Route: 065
     Dates: start: 2015
  58. FUROSEMIDE. [Concomitant]
     Active Substance: FUROSEMIDE
     Indication: FLUID RETENTION
     Route: 048
     Dates: start: 2014, end: 2016
  59. LORATADINE. [Concomitant]
     Active Substance: LORATADINE
     Indication: HYPERSENSITIVITY
     Route: 048
     Dates: start: 2014, end: 2017
  60. LOSARTAN. [Concomitant]
     Active Substance: LOSARTAN
     Indication: HYPERTENSION
     Route: 048
     Dates: start: 2014, end: 2016
  61. QUESTRAN [Concomitant]
     Active Substance: CHOLESTYRAMINE
     Route: 065
  62. FLEXERIL [Concomitant]
     Active Substance: CYCLOBENZAPRINE HYDROCHLORIDE
     Route: 048
  63. PROSCAR [Concomitant]
     Active Substance: FINASTERIDE
     Route: 048
  64. LIDEX [Concomitant]
     Active Substance: FLUOCINONIDE
     Dosage: APPLY TOPICALLY 2 TIMES DAILY
     Route: 065
  65. PYRIDIUM [Concomitant]
     Active Substance: PHENAZOPYRIDINE
     Indication: PAIN
     Route: 048
  66. INDERAL [Concomitant]
     Active Substance: PROPRANOLOL HYDROCHLORIDE
     Indication: PAIN
     Route: 048
  67. FERROUS SULFATE. [Concomitant]
     Active Substance: FERROUS SULFATE
     Route: 065
  68. SPIRONOLACTONE. [Concomitant]
     Active Substance: SPIRONOLACTONE
     Route: 065
  69. SEROQUEL [Concomitant]
     Active Substance: QUETIAPINE FUMARATE
  70. OMEPRAZOLE. [Concomitant]
     Active Substance: OMEPRAZOLE
  71. GLUCAGON. [Concomitant]
     Active Substance: GLUCAGON
  72. AUGMENTIN [Concomitant]
     Active Substance: AMOXICILLIN\CLAVULANATE POTASSIUM
  73. TESSALON [Concomitant]
     Active Substance: BENZONATATE
  74. NEOMYCIN. [Concomitant]
     Active Substance: NEOMYCIN
     Dates: start: 20200814
  75. HYDROCORTISONE. [Concomitant]
     Active Substance: HYDROCORTISONE
     Dates: start: 20191216
  76. LACTULOSE. [Concomitant]
     Active Substance: LACTULOSE
     Dates: start: 20191216
  77. CLOTRIAMAZOLE?BETAMETHASONE [Concomitant]
     Dates: start: 20191216
  78. NEXIUM [Suspect]
     Active Substance: ESOMEPRAZOLE MAGNESIUM
     Indication: DYSPEPSIA
     Dosage: 40.0MG UNKNOWN
     Route: 048
     Dates: start: 2009
  79. NEXIUM [Suspect]
     Active Substance: ESOMEPRAZOLE MAGNESIUM
     Indication: DYSPEPSIA
     Dosage: GENERIC 40.0MG UNKNOWN
     Route: 065
     Dates: start: 20150624
  80. NEXIUM [Suspect]
     Active Substance: ESOMEPRAZOLE MAGNESIUM
     Indication: DYSPEPSIA
     Dosage: 40.0MG UNKNOWN
     Route: 048
     Dates: start: 20160725
  81. NEXIUM [Suspect]
     Active Substance: ESOMEPRAZOLE MAGNESIUM
     Indication: DYSPEPSIA
     Dosage: 20.0MG UNKNOWN
     Route: 048
     Dates: start: 2009, end: 2018
  82. FUROSEMIDE. [Concomitant]
     Active Substance: FUROSEMIDE
     Indication: PERIPHERAL SWELLING
     Route: 048
     Dates: start: 2014, end: 2016
  83. HYDROCODONE/ACETAMINOPHEN [Concomitant]
     Active Substance: ACETAMINOPHEN\HYDROCODONE
     Dosage: 7.5?325MG1.0DF EVERY 4 ? 6 HOURS
     Route: 048
  84. KLOR?CON [Concomitant]
     Active Substance: POTASSIUM CHLORIDE
     Indication: PAIN
     Route: 048
  85. BUSPIRONE HCL [Concomitant]
     Active Substance: BUSPIRONE HYDROCHLORIDE
     Dosage: 8.0MG EVERY 8 ? 12 HOURS
     Route: 048
  86. HYDRALAZINE HCL [Concomitant]
     Active Substance: HYDRALAZINE HYDROCHLORIDE
     Route: 065
  87. KONSYL [Concomitant]
     Active Substance: PSYLLIUM HUSK
  88. VITAMIN B12 [Concomitant]
     Active Substance: CYANOCOBALAMIN
     Dates: start: 20180615
  89. ROCEFIN [Concomitant]
     Active Substance: CEFTRIAXONE SODIUM
  90. CYMBATLA [Concomitant]
  91. TRIAMCINOLONE [Concomitant]
     Active Substance: TRIAMCINOLONE
     Dates: start: 20200814
  92. OSELTAMIVIR [Concomitant]
     Active Substance: OSELTAMIVIR
     Dates: start: 20191216
  93. NEOMYCIN?POLYMYXIN [Concomitant]
     Dates: start: 20191216
  94. PANCRELIPASE. [Concomitant]
     Active Substance: PANCRELIPASE
     Dates: start: 20181109
  95. AMLODIPINE [Concomitant]
     Active Substance: AMLODIPINE BESYLATE
     Indication: HYPERTENSION
     Route: 048
     Dates: start: 2014, end: 2017
  96. CLONIDINE. [Concomitant]
     Active Substance: CLONIDINE
     Indication: HYPERTENSION
     Route: 048
     Dates: start: 2014, end: 2016
  97. PATANOL [Concomitant]
     Active Substance: OLOPATADINE HYDROCHLORIDE
     Indication: EYE DISORDER
     Route: 065
     Dates: start: 2014
  98. TERAZOSIN [Concomitant]
     Active Substance: TERAZOSIN HYDROCHLORIDE
     Indication: HYPERTENSION
     Route: 048
     Dates: start: 2014
  99. KLOR?CON [Concomitant]
     Active Substance: POTASSIUM CHLORIDE
     Indication: PAIN
     Dates: start: 20200814
  100. SILVADENE [Concomitant]
     Active Substance: SILVER SULFADIAZINE
  101. CEFTRIAXONE. [Concomitant]
     Active Substance: CEFTRIAXONE
  102. MORPHINE [Concomitant]
     Active Substance: MORPHINE
  103. VANCOMYCIN [Concomitant]
     Active Substance: VANCOMYCIN
     Dates: start: 20180616
  104. TRESIBA [Concomitant]
     Active Substance: INSULIN DEGLUDEC
  105. ONDASETRON [Concomitant]
     Active Substance: ONDANSETRON
     Dates: start: 20200814
  106. MONTELUKAST [Concomitant]
     Active Substance: MONTELUKAST SODIUM
     Dates: start: 20200814
  107. TAMSULOSIN [Concomitant]
     Active Substance: TAMSULOSIN
     Dates: start: 20200814
  108. TIZANIDINE. [Concomitant]
     Active Substance: TIZANIDINE
     Dates: start: 20200814
  109. CEFUROXIME. [Concomitant]
     Active Substance: CEFUROXIME
     Dates: start: 20191216
  110. SODIUM CHLORIDE. [Concomitant]
     Active Substance: SODIUM CHLORIDE
     Dates: start: 20191216
  111. TIZANIDINE HCL [Concomitant]
     Active Substance: TIZANIDINE HYDROCHLORIDE

REACTIONS (3)
  - Chronic kidney disease [Not Recovered/Not Resolved]
  - Acute kidney injury [Not Recovered/Not Resolved]
  - Renal failure [Unknown]

NARRATIVE: CASE EVENT DATE: 20130806
